FAERS Safety Report 6212312-X (Version None)
Quarter: 2009Q2

REPORT INFORMATION
  Report Type: 
  Country: None (occurrence: None)
  Receive Date: 20090529
  Receipt Date: 20090514
  Transmission Date: 20091009
  Serious: Yes (Other)
  Sender: FDA-Public Use
  Company Number: 2009S1008817

PATIENT
  Age: 59 Year
  Sex: Female

DRUGS (9)
  1. FLUOXETINE [Suspect]
     Indication: DEPRESSION
     Dosage: 60 MG; TWICE A DAY; ORAL, 20 MG, TWICE A DAY, ORAL
     Route: 048
     Dates: start: 20080303
  2. FEXOFENADINE [Concomitant]
  3. HYPROMELLOSE [Concomitant]
  4. LANSOPRAZOLE [Concomitant]
  5. LEVOTHYROXINE SODIUM [Concomitant]
  6. MEBEVERINE HYDROCHLORIDE [Concomitant]
  7. SUMATRIPTAN SUCCINATE [Concomitant]
  8. VISCOTEARS [Concomitant]
  9. FLUOXETINE HCL [Concomitant]

REACTIONS (2)
  - MEMORY IMPAIRMENT [None]
  - TREMOR [None]
